FAERS Safety Report 13837895 (Version 2)
Quarter: 2017Q4

REPORT INFORMATION
  Report Type: Report from Study
  Country: ES (occurrence: ES)
  Receive Date: 20170807
  Receipt Date: 20171110
  Transmission Date: 20180320
  Serious: Yes (Death, Other)
  Sender: FDA-Public Use
  Company Number: ES-ROCHE-1972463

PATIENT

DRUGS (2)
  1. TOCILIZUMAB. [Suspect]
     Active Substance: TOCILIZUMAB
     Indication: TEMPORAL ARTERITIS
     Route: 058
  2. TOCILIZUMAB. [Suspect]
     Active Substance: TOCILIZUMAB
     Indication: TEMPORAL ARTERITIS
     Route: 042

REACTIONS (11)
  - Neutropenia [Unknown]
  - Pneumonia [Unknown]
  - Hypertensive crisis [Unknown]
  - Colon neoplasm [Unknown]
  - Cytomegalovirus infection [Unknown]
  - Cerebrovascular accident [Fatal]
  - Adenocarcinoma of colon [Unknown]
  - Myelodysplastic syndrome [Unknown]
  - Cellulitis [Unknown]
  - Diverticulitis [Unknown]
  - Dementia Alzheimer^s type [Unknown]
